FAERS Safety Report 6810989-9 (Version None)
Quarter: 2010Q2

REPORT INFORMATION
  Report Type: 
  Country: None (occurrence: None)
  Receive Date: 20100630
  Receipt Date: 20081211
  Transmission Date: 20101027
  Serious: No
  Sender: FDA-Public Use
  Company Number: US-PFIZER INC-2008093765

PATIENT
  Sex: Female
  Weight: 81.818 kg

DRUGS (1)
  1. ESTRING [Suspect]
     Indication: VAGINAL DISORDER
     Dates: start: 20081030

REACTIONS (1)
  - DRUG INEFFECTIVE [None]
